FAERS Safety Report 23706023 (Version 1)
Quarter: 2024Q2

REPORT INFORMATION
  Report Type: Spontaneous
  Country: US (occurrence: None)
  Receive Date: 20240403
  Receipt Date: 20240403
  Transmission Date: 20240715
  Serious: Yes (Disabling)
  Sender: FDA-Public Use
  Company Number: None

PATIENT
  Age: 58 Year
  Sex: Female
  Weight: 71.1 kg

DRUGS (5)
  1. CLARITHROMYCIN [Suspect]
     Active Substance: CLARITHROMYCIN
     Indication: Helicobacter infection
     Dates: start: 20240220, end: 20240304
  2. MAGNESIUM [Concomitant]
  3. VITAMIN D3 [Concomitant]
     Active Substance: CHOLECALCIFEROL
  4. AMOXICILLIN [Suspect]
     Active Substance: AMOXICILLIN
  5. OMEPRAZOLE [Suspect]
     Active Substance: OMEPRAZOLE

REACTIONS (7)
  - Tinnitus [None]
  - Deafness [None]
  - Vulvovaginal pruritus [None]
  - Vaginal discharge [None]
  - Headache [None]
  - Insomnia [None]
  - Disturbance in attention [None]

NARRATIVE: CASE EVENT DATE: 20240319
